FAERS Safety Report 4602733-0 (Version None)
Quarter: 2005Q1

REPORT INFORMATION
  Report Type: 
  Country: None (occurrence: None)
  Receive Date: 20050309
  Receipt Date: 20050303
  Transmission Date: 20050727
  Serious: Yes (Life-Threatening, Hospitalization, Disabling)
  Sender: FDA-Public Use
  Company Number: US-MERCK-0503USA00493

PATIENT
  Age: 65 Year
  Sex: Female

DRUGS (6)
  1. ZOCOR [Suspect]
     Indication: OBSTRUCTION
     Route: 048
     Dates: start: 20041201, end: 20050201
  2. ALTACE [Concomitant]
     Route: 065
  3. ISOSORBIDE [Concomitant]
     Route: 065
  4. PLAVIX [Concomitant]
     Route: 065
  5. ASPIRIN [Concomitant]
     Route: 065
  6. COREG [Concomitant]
     Route: 065

REACTIONS (5)
  - ALOPECIA [None]
  - GALLBLADDER DISORDER [None]
  - MYOCARDIAL INFARCTION [None]
  - NEPHROLITHIASIS [None]
  - ULCER HAEMORRHAGE [None]
